FAERS Safety Report 7795006-9 (Version None)
Quarter: 2011Q4

REPORT INFORMATION
  Report Type: 
  Country: None (occurrence: None)
  Receive Date: 20111004
  Receipt Date: 20110928
  Transmission Date: 20120403
  Serious: Yes (Death, Other)
  Sender: FDA-Public Use
  Company Number: PHHY2011AT85480

PATIENT
  Age: 70 Year
  Sex: Male
  Weight: 72 kg

DRUGS (14)
  1. MYFORTIC [Suspect]
     Indication: IMMUNOSUPPRESSION
     Dosage: 360 MG
     Route: 048
     Dates: start: 20101114
  2. PANTOPRAZOLE SODIUM [Concomitant]
     Indication: PROPHYLAXIS
     Dosage: 40 MG, UNK
     Route: 048
     Dates: start: 20101111
  3. INSULIN NOVO [Concomitant]
     Indication: DIABETES MELLITUS
     Dosage: UNK UKN, UNK
  4. YOMOGI [Concomitant]
     Indication: DIARRHOEA
     Dosage: 2 CAPSULES 3 TIMES PER DAY
  5. CAL-D-VITA [Concomitant]
     Indication: OSTEOPOROSIS PROPHYLAXIS
     Dosage: UNK UKN, QD
     Dates: start: 20110414
  6. UROSIN [Concomitant]
     Indication: HYPERURICAEMIA
     Dosage: 100 MG, UNK
     Route: 048
     Dates: start: 20110328
  7. PROGRAF [Concomitant]
     Indication: IMMUNOSUPPRESSION
     Dosage: 4 MG, QD
     Route: 048
     Dates: start: 20101111
  8. SODIUM POLYSTYRENE SULFONATE [Concomitant]
     Indication: HYPERKALAEMIA
     Dosage: UNK UKN, UNK
     Route: 048
     Dates: start: 20110113
  9. TAMSULOSIN HCL [Concomitant]
     Indication: BENIGN PROSTATIC HYPERPLASIA
     Dosage: 0.4 MG, UNK
     Route: 048
     Dates: start: 20110414
  10. APREDNISLON [Concomitant]
     Indication: IMMUNOSUPPRESSION
     Dosage: 7.5 MG, QD
     Dates: start: 20101213
  11. MYFORTIC [Suspect]
     Dosage: 720 MG, UNK
     Route: 048
     Dates: start: 20101115, end: 20101204
  12. MYFORTIC [Suspect]
     Dosage: 720 MG, UNK
     Route: 048
     Dates: start: 20110107, end: 20110109
  13. LOVENOX [Concomitant]
     Indication: THROMBOSIS PROPHYLAXIS
     Dosage: 20 MG, UNK
     Route: 058
     Dates: start: 20110611
  14. MYFORTIC [Suspect]
     Dosage: 360 MG, UNK
     Route: 048
     Dates: start: 20110105, end: 20110106

REACTIONS (7)
  - ENTERITIS [None]
  - PNEUMONIA [None]
  - SEPTIC SHOCK [None]
  - CARDIAC FAILURE [None]
  - CIRCULATORY COLLAPSE [None]
  - LEUKOPENIA [None]
  - BRONCHOPNEUMONIA [None]
